FAERS Safety Report 19893458 (Version 13)
Quarter: 2022Q4

REPORT INFORMATION
  Report Type: Spontaneous
  Country: CA (occurrence: CA)
  Receive Date: 20210929
  Receipt Date: 20221220
  Transmission Date: 20230113
  Serious: Yes (Other)
  Sender: FDA-Public Use
  Company Number: CA-CELLTRION INC.-2021CA010466

PATIENT

DRUGS (39)
  1. INFLECTRA [Suspect]
     Active Substance: INFLIXIMAB-DYYB
     Indication: Crohn^s disease
     Dosage: 230 MG INDUCTION AT  0 , 2, 6 THEN EVERY 8 WEEKS
     Route: 042
     Dates: start: 20210611, end: 20210625
  2. INFLECTRA [Suspect]
     Active Substance: INFLIXIMAB-DYYB
     Dosage: 230 MG INDUCTION AT  0 , 2, 6 THEN EVERY 8 WEEKS
     Route: 042
     Dates: start: 20210625
  3. INFLECTRA [Suspect]
     Active Substance: INFLIXIMAB-DYYB
     Dosage: 5 MG/KG, AS PER WEIGHT ON THE DAY OF INFUSION EVERY 8 WEEKS
     Route: 042
     Dates: start: 20210721, end: 20220624
  4. INFLECTRA [Suspect]
     Active Substance: INFLIXIMAB-DYYB
     Dosage: 285 MG (5MG/KG) EVERY 8 WEEKS
     Route: 042
     Dates: start: 20210722
  5. INFLECTRA [Suspect]
     Active Substance: INFLIXIMAB-DYYB
     Dosage: 285 MG EVERY 8 WEEKS
     Route: 042
     Dates: start: 20210723
  6. INFLECTRA [Suspect]
     Active Substance: INFLIXIMAB-DYYB
     Dosage: 285 MG EVERY 8 WEEKS
     Route: 042
     Dates: start: 20210917
  7. INFLECTRA [Suspect]
     Active Substance: INFLIXIMAB-DYYB
     Dosage: 5 MG/KG, EVERY 8 WEEKS
     Route: 042
     Dates: start: 20211112
  8. INFLECTRA [Suspect]
     Active Substance: INFLIXIMAB-DYYB
     Dosage: 5 MG/KG, EVERY 8 WEEKS
     Route: 042
     Dates: start: 20220107
  9. INFLECTRA [Suspect]
     Active Substance: INFLIXIMAB-DYYB
     Dosage: 5 MG/KG, EVERY 8 WEEKS
     Route: 042
     Dates: start: 20220107
  10. INFLECTRA [Suspect]
     Active Substance: INFLIXIMAB-DYYB
     Dosage: 5 MG/KG, EVERY 8 WEEKS
     Route: 042
     Dates: start: 20220304
  11. INFLECTRA [Suspect]
     Active Substance: INFLIXIMAB-DYYB
     Dosage: 5 MG/KG, EVERY 8 WEEKS
     Route: 042
     Dates: start: 20220429
  12. INFLECTRA [Suspect]
     Active Substance: INFLIXIMAB-DYYB
     Dosage: 5 MG/KG, EVERY 8 WEEKS
     Route: 042
     Dates: start: 20220624
  13. INFLECTRA [Suspect]
     Active Substance: INFLIXIMAB-DYYB
     Dosage: 5 MG/KG, EVERY 8 WEEKS (5MG/KG AS PER WEIGHT ON THE DAY OF INFUSION)
     Route: 042
     Dates: start: 20220805
  14. INFLECTRA [Suspect]
     Active Substance: INFLIXIMAB-DYYB
     Dosage: 10 MG/KG, EVERY 6 WEEKS
     Route: 042
     Dates: start: 20220805
  15. INFLECTRA [Suspect]
     Active Substance: INFLIXIMAB-DYYB
     Dosage: 10 MG/KG, EVERY 6 WEEKS
     Route: 042
     Dates: start: 20220916
  16. INFLECTRA [Suspect]
     Active Substance: INFLIXIMAB-DYYB
     Dosage: 10 MG/KG, EVERY 6 WEEKS
     Route: 042
     Dates: start: 20221028
  17. INFLECTRA [Suspect]
     Active Substance: INFLIXIMAB-DYYB
     Dosage: 10 MG/KG EVERY 6 WEEKS
     Route: 042
     Dates: start: 20221209
  18. ACETAMINOPHEN [Concomitant]
     Active Substance: ACETAMINOPHEN
     Indication: Premedication
     Dosage: 500 MG
     Route: 048
     Dates: start: 20210625
  19. ACETAMINOPHEN [Concomitant]
     Active Substance: ACETAMINOPHEN
     Dosage: 650 MG
     Route: 048
     Dates: start: 20211112, end: 20211112
  20. ACETAMINOPHEN [Concomitant]
     Active Substance: ACETAMINOPHEN
     Dosage: 650 MG
     Dates: start: 20220916, end: 20220916
  21. ACETAMINOPHEN [Concomitant]
     Active Substance: ACETAMINOPHEN
     Dosage: 650 MG
     Dates: start: 20221209, end: 20221209
  22. BENADRYL [Concomitant]
     Active Substance: DIPHENHYDRAMINE HYDROCHLORIDE
     Indication: Premedication
     Dosage: UNK
     Dates: start: 20220805, end: 20220805
  23. DIMENHYDRINATE [Concomitant]
     Active Substance: DIMENHYDRINATE
     Indication: Premedication
     Dosage: 50 MG
     Route: 048
     Dates: start: 20210625
  24. DIMENHYDRINATE [Concomitant]
     Active Substance: DIMENHYDRINATE
     Dosage: 50 MG
     Route: 048
     Dates: start: 20211112, end: 20211112
  25. DIMENHYDRINATE [Concomitant]
     Active Substance: DIMENHYDRINATE
     Dosage: 50 MG
     Dates: start: 20220916, end: 20220916
  26. DIPHENHYDRAMINE [Concomitant]
     Active Substance: DIPHENHYDRAMINE
     Indication: Premedication
     Dosage: 25 MG
     Route: 048
     Dates: start: 20211112, end: 20211112
  27. DIPHENHYDRAMINE [Concomitant]
     Active Substance: DIPHENHYDRAMINE
     Dosage: 50 MG
  28. DIPHENHYDRAMINE [Concomitant]
     Active Substance: DIPHENHYDRAMINE
     Dosage: 50 MG
     Dates: start: 20220916, end: 20220916
  29. DIPHENHYDRAMINE [Concomitant]
     Active Substance: DIPHENHYDRAMINE
     Dosage: 50 MG
     Dates: start: 20221209, end: 20221209
  30. GRAVOL [Concomitant]
     Active Substance: DIMENHYDRINATE
     Indication: Premedication
     Dosage: UNK
     Dates: start: 20211112, end: 20211112
  31. HYDROCORTISONE [Concomitant]
     Active Substance: HYDROCORTISONE
     Indication: Premedication
     Dosage: 100 MG
  32. HYDROCORTISONE [Concomitant]
     Active Substance: HYDROCORTISONE
     Dosage: 100 MG
     Dates: start: 20221209, end: 20221209
  33. IMURAN [Concomitant]
     Active Substance: AZATHIOPRINE
     Dosage: 30 MG
     Route: 048
     Dates: start: 20220801
  34. MIRTAZAPINE [Concomitant]
     Active Substance: MIRTAZAPINE
     Dosage: 30 MG, 1X/DAY,AT NIGHT
     Route: 048
     Dates: start: 20220222
  35. PREDNISONE [Concomitant]
     Active Substance: PREDNISONE
     Dosage: 40 MG, 1X/DAY
     Route: 065
  36. TYLENOL [Concomitant]
     Active Substance: ACETAMINOPHEN
     Indication: Premedication
     Dosage: UNK
     Dates: start: 20220805
  37. VITAMIN C [Concomitant]
     Active Substance: ASCORBIC ACID
     Dosage: 1 DF
  38. CHOLECALCIFEROL [Concomitant]
     Active Substance: CHOLECALCIFEROL
     Dosage: 1 DF
     Route: 065
  39. CYANOCOBALAMIN [Concomitant]
     Active Substance: CYANOCOBALAMIN
     Dosage: 1 DF
     Route: 065

REACTIONS (46)
  - Haematochezia [Recovered/Resolved]
  - Intestinal obstruction [Unknown]
  - Anal fistula [Not Recovered/Not Resolved]
  - Drug ineffective [Unknown]
  - Incorrect dose administered [Unknown]
  - Drug specific antibody present [Unknown]
  - Nausea [Recovered/Resolved]
  - Headache [Recovered/Resolved]
  - Sinus tachycardia [Unknown]
  - Condition aggravated [Not Recovered/Not Resolved]
  - Erythema nodosum [Not Recovered/Not Resolved]
  - Abscess [Not Recovered/Not Resolved]
  - Weight increased [Unknown]
  - Rash papular [Unknown]
  - Arthralgia [Unknown]
  - Aphthous ulcer [Not Recovered/Not Resolved]
  - Urticaria [Unknown]
  - Heart rate increased [Not Recovered/Not Resolved]
  - Anaemia [Not Recovered/Not Resolved]
  - COVID-19 [Recovering/Resolving]
  - Stomatitis [Unknown]
  - Oral discomfort [Unknown]
  - Feeding disorder [Unknown]
  - Dyspnoea [Unknown]
  - Chest discomfort [Recovered/Resolved]
  - Tongue coated [Unknown]
  - Taste disorder [Unknown]
  - Mouth injury [Unknown]
  - Dyspnoea [Unknown]
  - Angular cheilitis [Unknown]
  - Candida infection [Unknown]
  - Mouth ulceration [Not Recovered/Not Resolved]
  - Chest discomfort [Unknown]
  - Sputum discoloured [Unknown]
  - Oral candidiasis [Not Recovered/Not Resolved]
  - Weight decreased [Unknown]
  - Productive cough [Recovered/Resolved]
  - Discomfort [Unknown]
  - Dyspnoea [Recovered/Resolved]
  - Throat irritation [Recovered/Resolved]
  - Oral lichen planus [Not Recovered/Not Resolved]
  - Anxiety [Unknown]
  - Lung disorder [Recovered/Resolved]
  - Oropharyngeal discomfort [Recovered/Resolved]
  - Chest discomfort [Recovered/Resolved]
  - Off label use [Unknown]

NARRATIVE: CASE EVENT DATE: 20210101
